FAERS Safety Report 7081756-9 (Version None)
Quarter: 2010Q4

REPORT INFORMATION
  Report Type: 
  Country: None (occurrence: None)
  Receive Date: 20101025
  Receipt Date: 20101019
  Transmission Date: 20110411
  Serious: Yes (Other)
  Sender: FDA-Public Use
  Company Number: 2010SP054771

PATIENT
  Age: 71 Year
  Sex: Male

DRUGS (1)
  1. MUSCULAX (VECURONIUM BROMIDE / 00600002/ ) [Suspect]
     Indication: NEUROMUSCULAR BLOCKING THERAPY
     Dosage: IV
     Route: 042

REACTIONS (4)
  - BLOOD CREATINE INCREASED [None]
  - DYSPNOEA [None]
  - DYSURIA [None]
  - RENAL IMPAIRMENT [None]
